FAERS Safety Report 21786460 (Version 2)
Quarter: 2023Q1

REPORT INFORMATION
  Report Type: Spontaneous
  Country: US (occurrence: US)
  Receive Date: 20221228
  Receipt Date: 20230105
  Transmission Date: 20230418
  Serious: Yes (Other)
  Sender: FDA-Public Use
  Company Number: US-BIOGEN-2022BI01177280

PATIENT

DRUGS (1)
  1. TYSABRI [Suspect]
     Active Substance: NATALIZUMAB
     Indication: Maternal exposure timing unspecified
     Route: 050
     Dates: end: 20220816

REACTIONS (2)
  - Neonatal disorder [Unknown]
  - Foetal exposure during pregnancy [Recovered/Resolved]
